FAERS Safety Report 6294973-2 (Version None)
Quarter: 2009Q3

REPORT INFORMATION
  Report Type: 
  Country: None (occurrence: None)
  Receive Date: 20090731
  Receipt Date: 20090731
  Transmission Date: 20100115
  Serious: Yes (Other)
  Sender: FDA-Public Use
  Company Number: None

PATIENT
  Age: 57 Year
  Sex: Female
  Weight: 65.7716 kg

DRUGS (1)
  1. AMOXICILLIN [Suspect]
     Indication: ENDODONTIC PROCEDURE
     Dosage: 1 PILL BID PO
     Route: 048
     Dates: start: 20090715, end: 20090720

REACTIONS (3)
  - ARTHRALGIA [None]
  - MYALGIA [None]
  - PRODUCT QUALITY ISSUE [None]
